FAERS Safety Report 14394663 (Version 1)
Quarter: 2018Q1

REPORT INFORMATION
  Report Type: Spontaneous
  Country: GB (occurrence: GB)
  Receive Date: 20180116
  Receipt Date: 20180116
  Transmission Date: 20180509
  Serious: Yes (Other)
  Sender: FDA-Public Use
  Company Number: GB-PFIZER INC-2018013117

PATIENT
  Age: 65 Year
  Sex: Female
  Weight: 74 kg

DRUGS (7)
  1. TRIMETHOPRIM. [Concomitant]
     Active Substance: TRIMETHOPRIM
     Dosage: 0.5 TABLET (DF), ONCE DAILY AT NIGHT
     Dates: start: 20171012
  2. ATORVASTATIN [Suspect]
     Active Substance: ATORVASTATIN
     Dosage: UNK
     Route: 048
     Dates: start: 20170810, end: 20171211
  3. BETMIGA [Concomitant]
     Active Substance: MIRABEGRON
     Dosage: 1 DOSAGE FORM (DF), ONCE DAILY AT NIGHT
     Dates: start: 20171012
  4. LOPERAMIDE [Concomitant]
     Active Substance: LOPERAMIDE
     Dosage: 1 DOSAGE FORM (DF), AS NEEDED AFTER EVERY BOWEL MOVEMENT
     Dates: start: 20170911
  5. QVAR [Concomitant]
     Active Substance: BECLOMETHASONE DIPROPIONATE
     Dosage: 4 DOSAGE FORMS (DF), DAILY
     Route: 055
     Dates: start: 20171107
  6. COCODAMOL [Concomitant]
     Active Substance: ACETAMINOPHEN\CODEINE PHOSPHATE
     Dosage: 1 OR 2 DOSAGE FORMS (DF), FOUR TIMES A DAY
  7. VENTOLIN [Concomitant]
     Active Substance: ALBUTEROL SULFATE
     Dosage: 1 TO 2 DOSES (DF), AS NEEDED
     Route: 055
     Dates: start: 20171107

REACTIONS (5)
  - Night sweats [Recovered/Resolved]
  - Sleep disorder [Recovered/Resolved]
  - Depressed mood [Recovered/Resolved]
  - Memory impairment [Recovered/Resolved]
  - Disturbance in attention [Recovered/Resolved]

NARRATIVE: CASE EVENT DATE: 20170810
